APPROVED DRUG PRODUCT: ORUDIS
Active Ingredient: KETOPROFEN
Strength: 25MG **Federal Register determination that product was not discontinued or withdrawn for safety or effectiveness reasons**
Dosage Form/Route: CAPSULE;ORAL
Application: N018754 | Product #001
Applicant: WYETH AYERST LABORATORIES
Approved: Jul 31, 1987 | RLD: Yes | RS: No | Type: DISCN